FAERS Safety Report 6214922-2 (Version None)
Quarter: 2009Q2

REPORT INFORMATION
  Report Type: 
  Country: None (occurrence: None)
  Receive Date: 20090604
  Receipt Date: 20090528
  Transmission Date: 20091009
  Serious: Yes (Life-Threatening, Hospitalization)
  Sender: FDA-Public Use
  Company Number: JP-ABBOTT-09P-087-0565520-00

PATIENT
  Age: 70 Year
  Sex: Female
  Weight: 39.5 kg

DRUGS (13)
  1. CLARITHROMYCIN [Suspect]
     Indication: PNEUMONIA
     Route: 048
     Dates: start: 20080623
  2. CLARITHROMYCIN [Suspect]
     Dosage: 400 MG BID
     Route: 048
     Dates: start: 20080723, end: 20080729
  3. JUVELA [Concomitant]
     Indication: CEREBRAL INFARCTION
     Route: 048
     Dates: end: 20080710
  4. AMLODIPINE [Concomitant]
     Indication: HYPERTENSION
     Route: 048
     Dates: start: 19980101, end: 20080710
  5. ZYRTEC [Concomitant]
     Indication: UPPER RESPIRATORY TRACT INFLAMMATION
     Route: 048
     Dates: start: 20080626
  6. PREDONINE [Concomitant]
     Indication: PNEUMONIA
     Route: 048
     Dates: start: 20080626
  7. PL (SALICYLAMIDE/ACETAMINOPHEN/ANHYDROUS CAFFEINE/PROMETHAZINE METHYLE [Concomitant]
     Indication: UPPER RESPIRATORY TRACT INFLAMMATION
     Dates: start: 20080703
  8. SOL MEDROL [Concomitant]
     Indication: INTERSTITIAL LUNG DISEASE
     Dosage: 1000 MG DAILY
     Route: 042
     Dates: start: 20080715, end: 20080717
  9. BAKTAR [Concomitant]
     Indication: DRUG USE FOR UNKNOWN INDICATION
     Route: 048
     Dates: start: 20080701
  10. KALIMATE [Concomitant]
     Indication: DRUG USE FOR UNKNOWN INDICATION
     Route: 048
     Dates: start: 20080701
  11. GASTER [Concomitant]
     Indication: DRUG USE FOR UNKNOWN INDICATION
     Route: 048
     Dates: start: 20080701
  12. ASVERIN [Concomitant]
     Indication: DRUG USE FOR UNKNOWN INDICATION
     Route: 048
     Dates: start: 20080701
  13. MINOCYCLINE HCL [Concomitant]
     Indication: DRUG USE FOR UNKNOWN INDICATION
     Route: 048
     Dates: start: 20080701

REACTIONS (3)
  - ANTIBODY TEST POSITIVE [None]
  - INTERSTITIAL LUNG DISEASE [None]
  - RASH [None]
